FAERS Safety Report 9961271 (Version 2)
Quarter: 2014Q2

REPORT INFORMATION
  Report Type: Report from Study
  Country: US (occurrence: US)
  Receive Date: 20140305
  Receipt Date: 20140617
  Transmission Date: 20141212
  Serious: Yes (Hospitalization)
  Sender: FDA-Public Use
  Company Number: US-VERTEX PHARMACEUTICALS INC-2014-000983

PATIENT
  Age: 54 Year
  Sex: Male

DRUGS (14)
  1. VX-770 [Suspect]
     Indication: CYSTIC FIBROSIS
     Dosage: 150 MG, BID
     Route: 048
     Dates: start: 20120622
  2. ACTONEL COMBI [Concomitant]
     Indication: OSTEOPENIA
     Route: 065
  3. ALBUTEROL SULFATE [Concomitant]
     Indication: DYSPNOEA
     Dosage: INH Q6 HOURS
     Route: 065
     Dates: end: 20140124
  4. ALBUTEROL SULFATE [Concomitant]
     Indication: WHEEZING
  5. DORNASE ALFA [Concomitant]
     Indication: PRODUCT USED FOR UNKNOWN INDICATION
     Dosage: 2.5 MG, QD
     Route: 065
     Dates: end: 20140124
  6. FLUTICASONE PROPIONATE [Concomitant]
     Indication: PRODUCT USED FOR UNKNOWN INDICATION
     Dosage: 220 MCG UNK, UNK
     Route: 048
     Dates: end: 20140214
  7. FLUTICASONE W/SALMETEROL [Concomitant]
     Indication: PRODUCT USED FOR UNKNOWN INDICATION
     Dosage: 500/50
     Route: 065
     Dates: end: 20140214
  8. MONTELUKAST [Concomitant]
     Indication: PRODUCT USED FOR UNKNOWN INDICATION
     Dosage: 10 MG, UNK
     Route: 048
     Dates: end: 20140213
  9. LORAZEPAM [Concomitant]
     Indication: SLEEP DISORDER
     Dosage: 1 MG, PRN
     Route: 048
     Dates: end: 20140213
  10. AZITHROMYCIN [Concomitant]
     Indication: PRODUCT USED FOR UNKNOWN INDICATION
     Dosage: 250 MG, TID
     Route: 048
     Dates: end: 20140214
  11. ASCORBIC ACID [Concomitant]
     Indication: PRODUCT USED FOR UNKNOWN INDICATION
     Dosage: 1 DF, QD
     Route: 048
     Dates: end: 20140214
  12. FERROUS SULFATE [Concomitant]
     Indication: PRODUCT USED FOR UNKNOWN INDICATION
     Dosage: 324 MG, QD
     Route: 048
     Dates: end: 20140214
  13. MULTIVITAMIN [Concomitant]
     Indication: PRODUCT USED FOR UNKNOWN INDICATION
     Dosage: 1 DF, QD
     Route: 048
     Dates: end: 20140214
  14. PETROLATUM [Concomitant]
     Indication: PRODUCT USED FOR UNKNOWN INDICATION
     Dosage: UNK, BID
     Route: 061
     Dates: end: 20140214

REACTIONS (2)
  - Antibiotic therapy [Recovered/Resolved]
  - Bronchiectasis [Recovering/Resolving]
